FAERS Safety Report 9351781 (Version 2)
Quarter: 2013Q2

REPORT INFORMATION
  Report Type: Spontaneous
  Country: JP (occurrence: JP)
  Receive Date: 20130617
  Receipt Date: 20130617
  Transmission Date: 20140414
  Serious: Yes (Life-Threatening, Hospitalization, Other)
  Sender: FDA-Public Use
  Company Number: JP-B.I. PHARMACEUTICALS,INC./RIDGEFIELD-2013-BI-07057NB

PATIENT
  Age: 86 Year
  Sex: Female
  Weight: 49.5 kg

DRUGS (14)
  1. TRAZENTA [Suspect]
     Indication: DIABETES MELLITUS
     Dosage: 5 MG
     Route: 048
     Dates: start: 20130116, end: 20130306
  2. PRAVASTAN [Suspect]
     Indication: HYPERLIPIDAEMIA
     Dosage: 5 MG
     Route: 048
     Dates: start: 20130105, end: 20130320
  3. UNICON [Suspect]
     Indication: ASTHMA
     Dosage: 400 MG
     Route: 048
     Dates: end: 20130301
  4. ARGAMATE [Suspect]
     Indication: HYPERKALAEMIA
     Dosage: 25 G
     Route: 048
     Dates: end: 20130321
  5. ALENDRONATE [Suspect]
     Indication: OSTEOPOROSIS
     Route: 048
     Dates: end: 20130321
  6. LAC-B [Suspect]
     Dosage: 2 G
     Route: 048
     Dates: end: 20130326
  7. THEOPHYLLINE [Suspect]
     Indication: ASTHMA
     Dosage: 200 MG
     Route: 048
     Dates: start: 20130106, end: 20130301
  8. THEOPHYLLINE [Suspect]
     Dosage: 100 MG
     Route: 048
     Dates: start: 20130221, end: 20130301
  9. RENIVEZE [Concomitant]
     Indication: HYPERTENSION
     Dosage: 2.5 MG
     Route: 048
     Dates: start: 20130106
  10. AMLODIPINE [Concomitant]
     Indication: HYPERTENSION
     Dosage: 5 MG
     Route: 048
  11. FAMOTIDINE [Concomitant]
     Dosage: 10 MG
     Route: 048
  12. CALONAL [Concomitant]
     Indication: ABDOMINAL PAIN
     Route: 048
     Dates: start: 20130115, end: 20130227
  13. SYMBICORT [Concomitant]
     Indication: ASTHMA
     Route: 065
     Dates: start: 20130107
  14. RENIVACE [Concomitant]
     Indication: HYPERTENSION
     Dosage: 5 MG
     Route: 048
     Dates: start: 20130105

REACTIONS (8)
  - Nausea [Recovered/Resolved]
  - Vomiting [Recovered/Resolved]
  - Decreased appetite [Recovered/Resolved]
  - Lacunar infarction [Unknown]
  - Diabetes mellitus inadequate control [Unknown]
  - Headache [Unknown]
  - Nephrolithiasis [Unknown]
  - Cerebral ischaemia [Unknown]
